FAERS Safety Report 8020529-7 (Version None)
Quarter: 2012Q1

REPORT INFORMATION
  Report Type: 
  Country: None (occurrence: None)
  Receive Date: 20120103
  Receipt Date: 20111221
  Transmission Date: 20120608
  Serious: Yes (Death)
  Sender: FDA-Public Use
  Company Number: ES-ROCHE-1026469

PATIENT
  Age: 68 Year

DRUGS (2)
  1. ALTEPLASE [Suspect]
     Indication: CEREBRAL ARTERY OCCLUSION
     Route: 042
  2. IOVERSOL [Suspect]
     Indication: ANGIOGRAM

REACTIONS (2)
  - NEUROLOGICAL DECOMPENSATION [None]
  - CEREBRAL INFARCTION [None]
